FAERS Safety Report 6966875-7 (Version None)
Quarter: 2010Q3

REPORT INFORMATION
  Report Type: 
  Country: None (occurrence: None)
  Receive Date: 20100906
  Receipt Date: 20100830
  Transmission Date: 20110219
  Serious: Yes (Death, Hospitalization)
  Sender: FDA-Public Use
  Company Number: PHHY2010TR58028

PATIENT
  Age: 11 Year
  Sex: Male

DRUGS (4)
  1. CYCLOSPORINE [Suspect]
     Indication: HISTIOCYTOSIS HAEMATOPHAGIC
  2. METHYLPREDNISOLONE [Suspect]
     Indication: HISTIOCYTOSIS HAEMATOPHAGIC
     Dosage: 2 MG/KG, UNK
  3. IMMUNOGLOBULIN ANTI-HUMAN-LYMPHOCYTIC [Concomitant]
     Dosage: 0.5 G/DAY
     Route: 042
  4. MESALAMINE [Concomitant]
     Route: 048

REACTIONS (8)
  - ACINETOBACTER TEST POSITIVE [None]
  - FEBRILE NEUTROPENIA [None]
  - HAEMATOCHEZIA [None]
  - HAEMORRHAGE [None]
  - HISTIOCYTOSIS HAEMATOPHAGIC [None]
  - LAPAROTOMY [None]
  - LYMPHOHISTIOCYTOSIS [None]
  - PANCYTOPENIA [None]
